FAERS Safety Report 15066648 (Version 2)
Quarter: 2018Q3

REPORT INFORMATION
  Report Type: Report from Study
  Country: US (occurrence: US)
  Receive Date: 20180626
  Receipt Date: 20180720
  Transmission Date: 20181010
  Serious: No
  Sender: FDA-Public Use
  Company Number: US-UNITED THERAPEUTICS-UNT-2018-009163

PATIENT
  Sex: Female

DRUGS (2)
  1. TREPROSTINIL SODIUM (SQ) [Suspect]
     Active Substance: TREPROSTINIL SODIUM
     Dosage: 0.0236 ?G/KG, CONTINUING, 0.032 ML/HR
     Route: 058
  2. TREPROSTINIL SODIUM (SQ) [Suspect]
     Active Substance: TREPROSTINIL SODIUM
     Indication: PULMONARY ARTERIAL HYPERTENSION
     Dosage: 0.025 ?G/KG, CONTINUING
     Route: 058
     Dates: start: 20150220

REACTIONS (2)
  - Infusion site pain [Unknown]
  - Infusion site cellulitis [Recovered/Resolved]

NARRATIVE: CASE EVENT DATE: 20180616
